FAERS Safety Report 26217921 (Version 1)
Quarter: 2025Q4

REPORT INFORMATION
  Report Type: Spontaneous
  Country: CN (occurrence: CN)
  Receive Date: 20251231
  Receipt Date: 20251231
  Transmission Date: 20260118
  Serious: Yes (Other)
  Sender: FERRING
  Company Number: CN-FERRING-FMC-EVENT-006118

PATIENT

DRUGS (2)
  1. DINOPROSTONE [Suspect]
     Active Substance: DINOPROSTONE
     Indication: Induction of cervix ripening
     Dosage: 10 MG, ONCE/SINGLE
     Route: 067
     Dates: start: 20251216, end: 20251217
  2. DINOPROSTONE [Suspect]
     Active Substance: DINOPROSTONE
     Indication: Labour induction

REACTIONS (3)
  - Uterine tachysystole [Recovered/Resolved]
  - Abdominal pain lower [Recovered/Resolved]
  - Exposure during pregnancy [Recovered/Resolved]

NARRATIVE: CASE EVENT DATE: 20251216
